FAERS Safety Report 20962056 (Version 1)
Quarter: 2022Q2

REPORT INFORMATION
  Report Type: Spontaneous
  Country: US (occurrence: None)
  Receive Date: 20220614
  Receipt Date: 20220614
  Transmission Date: 20220720
  Serious: No
  Sender: FDA-Public Use
  Company Number: None

PATIENT
  Age: 48 Year
  Sex: Female
  Weight: 66.09 kg

DRUGS (8)
  1. SPRYCEL [Suspect]
     Active Substance: DASATINIB
     Indication: Philadelphia positive chronic myeloid leukaemia
     Dosage: FREQUENCY : DAILY;?
     Route: 048
     Dates: start: 202005
  2. HYDREA [Concomitant]
     Active Substance: HYDROXYUREA
  3. CLARITIN [Concomitant]
     Active Substance: LORATADINE
  4. halley FE 1.5/30 [Concomitant]
  5. CALCIUM [Concomitant]
     Active Substance: CALCIUM
  6. MAGNESIUM [Concomitant]
     Active Substance: MAGNESIUM
  7. VITAMIN D [Concomitant]
     Active Substance: VITAMIN D NOS
  8. Elderberry Zinc gummies [Concomitant]

REACTIONS (3)
  - Cough [None]
  - Respiratory tract congestion [None]
  - Oropharyngeal pain [None]
